FAERS Safety Report 7519899-5 (Version None)
Quarter: 2011Q2

REPORT INFORMATION
  Report Type: 
  Country: None (occurrence: None)
  Receive Date: 20110602
  Receipt Date: 20110525
  Transmission Date: 20111010
  Serious: Yes (Death)
  Sender: FDA-Public Use
  Company Number: FR-BAXTER-2011BH011205

PATIENT
  Age: 67 Year
  Sex: Male
  Weight: 50 kg

DRUGS (6)
  1. LENALIDOMIDE [Suspect]
     Indication: MULTIPLE MYELOMA
     Route: 048
     Dates: start: 20100125, end: 20100711
  2. RADIOTHERAPY [Suspect]
     Indication: MULTIPLE MYELOMA
     Route: 065
     Dates: start: 20100210, end: 20100302
  3. DEXAMETHASONE [Concomitant]
     Indication: MULTIPLE MYELOMA
     Route: 042
     Dates: start: 20100726, end: 20110111
  4. EPOETIN BETA [Concomitant]
     Indication: PRODUCT USED FOR UNKNOWN INDICATION
     Route: 058
     Dates: start: 20100416, end: 20100716
  5. CYCLOPHOSPHAMIDE [Suspect]
     Indication: MULTIPLE MYELOMA
     Route: 042
     Dates: start: 20100726, end: 20110111
  6. DEXAMETHASONE [Concomitant]
     Route: 048
     Dates: start: 20100125, end: 20100718

REACTIONS (1)
  - BRONCHIAL CARCINOMA [None]
